FAERS Safety Report 4298957-5 (Version None)
Quarter: 2004Q1

REPORT INFORMATION
  Report Type: 
  Country: None (occurrence: None)
  Receive Date: 20040219
  Receipt Date: 20040210
  Transmission Date: 20041129
  Serious: Yes (Hospitalization)
  Sender: FDA-Public Use
  Company Number: PHRM2004FR00828

PATIENT
  Age: 86 Year
  Sex: Female

DRUGS (4)
  1. COTAREG [Suspect]
     Route: 048
  2. TENORMIN [Concomitant]
  3. CHRONADALATE [Concomitant]
  4. HYPERIUM [Concomitant]

REACTIONS (2)
  - CEREBROVASCULAR ACCIDENT [None]
  - HEMIPLEGIA [None]
